FAERS Safety Report 4552205-7 (Version None)
Quarter: 2004Q4

REPORT INFORMATION
  Report Type: 
  Country: None (occurrence: None)
  Receive Date: 20041217
  Receipt Date: 20040827
  Transmission Date: 20050328
  Serious: No
  Sender: FDA-Public Use
  Company Number: 2004-BP-06257BP

PATIENT
  Age: 67 Year
  Sex: Female

DRUGS (18)
  1. SPIRIVA [Suspect]
     Indication: CHRONIC OBSTRUCTIVE AIRWAYS DISEASE
     Dosage: 18 MCG (18 MCG),IH
     Dates: start: 20040601
  2. SPIRIVA [Suspect]
  3. ADVAIR (SERETIDE MITE) [Concomitant]
  4. NEURONTIN [Concomitant]
  5. LEXAPRO [Concomitant]
  6. PROCARDIA [Concomitant]
  7. LORAZEPAM [Concomitant]
  8. HYDROCHLOROTHIAZIDE [Concomitant]
  9. MIRAPEX [Concomitant]
  10. PREMARIN [Concomitant]
  11. PEPCID [Concomitant]
  12. GLIPIZIDE [Concomitant]
  13. PERCOCET [Concomitant]
  14. ACETYLSALICYLIC ACID SRT [Concomitant]
  15. PREDNISONE [Concomitant]
  16. LASIX (LASIX) [Concomitant]
  17. KCL (POTASSIUM CHLORIDE) [Concomitant]
  18. SUPERVITAMIN [Concomitant]

REACTIONS (3)
  - FATIGUE [None]
  - FEELING ABNORMAL [None]
  - WHEEZING [None]
